FAERS Safety Report 7755700-2 (Version None)
Quarter: 2011Q3

REPORT INFORMATION
  Report Type: 
  Country: None (occurrence: None)
  Receive Date: 20110916
  Receipt Date: 20110903
  Transmission Date: 20111222
  Serious: Yes (Other)
  Sender: FDA-Public Use
  Company Number: PHHY2011IT79807

PATIENT
  Age: 53 Year
  Sex: Female
  Weight: 54 kg

DRUGS (4)
  1. IMATINIB MESYLATE [Suspect]
     Dosage: 400 MG, UNK
  2. DASATINIB [Suspect]
     Dosage: 70 MG, QD
  3. DASATINIB [Suspect]
     Dosage: 100 MG, QD
     Dates: start: 20080201
  4. IMATINIB MESYLATE [Suspect]
     Dosage: 600 MG, UNK
     Dates: start: 20080201

REACTIONS (5)
  - PLASMA CELLS DECREASED [None]
  - PYREXIA [None]
  - THERAPEUTIC RESPONSE PROLONGED [None]
  - HYPERSENSITIVITY [None]
  - MITRAL VALVE INCOMPETENCE [None]
